FAERS Safety Report 5863493-9 (Version None)
Quarter: 2008Q3

REPORT INFORMATION
  Report Type: 
  Country: None (occurrence: None)
  Receive Date: 20080828
  Receipt Date: 20080826
  Transmission Date: 20090109
  Serious: Yes (Hospitalization, Other)
  Sender: FDA-Public Use
  Company Number: US-PFIZER INC-2005097026

PATIENT
  Sex: Female
  Weight: 78.9 kg

DRUGS (12)
  1. SUTENT [Suspect]
     Indication: GASTROINTESTINAL STROMAL TUMOUR
     Route: 048
  2. ADALAT [Concomitant]
     Indication: HYPERTENSION
     Route: 048
  3. MOTRIN [Concomitant]
     Route: 048
     Dates: start: 19981201
  4. OXYCODONE HCL [Concomitant]
     Route: 048
     Dates: start: 20020301
  5. HYDROCHLOROTHIAZIDE [Concomitant]
     Indication: HYPERTENSION
     Route: 048
     Dates: start: 20030801
  6. POTASSIUM CHLORIDE [Concomitant]
     Route: 048
     Dates: start: 20040401
  7. ZOLOFT [Concomitant]
     Indication: DEPRESSION
     Route: 048
     Dates: start: 20040615
  8. LIPITOR [Concomitant]
     Indication: HYPERLIPIDAEMIA
     Route: 048
     Dates: start: 20020301
  9. IRON [Concomitant]
     Route: 048
     Dates: start: 20000401
  10. NORVASC [Concomitant]
     Indication: HYPERTENSION
     Route: 048
     Dates: start: 20041214, end: 20050623
  11. FOSAMAX [Concomitant]
     Route: 048
  12. TYLENOL (CAPLET) [Concomitant]
     Indication: ARTHRITIS
     Route: 048

REACTIONS (3)
  - DUODENAL ULCER [None]
  - HAEMOGLOBIN DECREASED [None]
  - HYPOTHYROIDISM [None]
